FAERS Safety Report 10159364 (Version 2)
Quarter: 2014Q2

REPORT INFORMATION
  Report Type: Spontaneous
  Country: US (occurrence: US)
  Receive Date: 20140508
  Receipt Date: 20140512
  Transmission Date: 20141212
  Serious: Yes (Hospitalization, Other)
  Sender: FDA-Public Use
  Company Number: US-RB-065547-14

PATIENT
  Age: 45 Year
  Sex: Male

DRUGS (2)
  1. DELSYM [Suspect]
     Indication: COUGH
     Route: 048
     Dates: start: 20140322
  2. TYLENOL [Concomitant]
     Indication: PRODUCT USED FOR UNKNOWN INDICATION

REACTIONS (21)
  - Syncope [Recovered/Resolved]
  - Arrhythmia [Recovered/Resolved]
  - Hypotension [Recovered/Resolved]
  - Tachycardia [Recovered/Resolved]
  - Influenza [Recovered/Resolved]
  - Unevaluable event [Recovered/Resolved]
  - Unresponsive to stimuli [Recovered/Resolved]
  - Loss of consciousness [Recovered/Resolved]
  - Somnolence [Recovered/Resolved]
  - Anxiety [Recovered/Resolved]
  - Heart rate increased [Recovered/Resolved]
  - Fall [Recovered/Resolved]
  - Tremor [Recovered/Resolved]
  - Bruxism [Recovered/Resolved]
  - Unevaluable event [Recovered/Resolved]
  - Hyperhidrosis [Recovered/Resolved]
  - Unevaluable event [Recovered/Resolved]
  - Asthenia [Recovered/Resolved]
  - Unevaluable event [Recovered/Resolved]
  - Moaning [Recovered/Resolved]
  - Hypersensitivity [Recovered/Resolved]
